APPROVED DRUG PRODUCT: FEXOFENADINE HYDROCHLORIDE
Active Ingredient: FEXOFENADINE HYDROCHLORIDE
Strength: 30MG/5ML
Dosage Form/Route: SUSPENSION;ORAL
Application: A201311 | Product #001
Applicant: P AND L DEVELOPMENT LLC
Approved: Jul 25, 2012 | RLD: No | RS: No | Type: DISCN